FAERS Safety Report 23169971 (Version 2)
Quarter: 2023Q4

REPORT INFORMATION
  Report Type: Report from Study
  Country: AU (occurrence: AU)
  Receive Date: 20231110
  Receipt Date: 20231124
  Transmission Date: 20240110
  Serious: Yes (Other)
  Sender: FDA-Public Use
  Company Number: AU-TAKEDA-2023TUS109184

PATIENT
  Sex: Female

DRUGS (3)
  1. VEDOLIZUMAB [Suspect]
     Active Substance: VEDOLIZUMAB
     Indication: Crohn^s disease
     Dosage: 300 MILLIGRAM
     Route: 042
  2. APIXABAN [Concomitant]
     Active Substance: APIXABAN
     Dosage: UNK
  3. Prozole [Concomitant]
     Dosage: UNK

REACTIONS (5)
  - Atrial fibrillation [Unknown]
  - Cardiac failure congestive [Unknown]
  - Oedema [Unknown]
  - Injection site haematoma [Unknown]
  - Poor venous access [Unknown]
